FAERS Safety Report 23762251 (Version 2)
Quarter: 2024Q2

REPORT INFORMATION
  Report Type: Report from Study
  Country: US (occurrence: US)
  Receive Date: 20240419
  Receipt Date: 20240515
  Transmission Date: 20240716
  Serious: Yes (Hospitalization)
  Sender: FDA-Public Use
  Company Number: US-RECORDATI RARE DISEASES-2023000377

PATIENT

DRUGS (7)
  1. CARBAGLU [Suspect]
     Active Substance: CARGLUMIC ACID
     Indication: Methylmalonic acidaemia
     Dosage: 200 MILLIGRAM, BID
     Dates: start: 20220818
  2. CARBAGLU [Suspect]
     Active Substance: CARGLUMIC ACID
     Dosage: DISSOLVE 2 TABLETS IN 2.5 ML OF WATER PER TABLET VIA G-TUBE AT 6 IN THE MORNING, THEN DISSOLVE 1 TAB
  3. CARBAGLU [Suspect]
     Active Substance: CARGLUMIC ACID
     Dosage: 400MG AT 6AM AND 10PM, 200MG AT 2PM
  4. CYANOCOBALAMIN [Concomitant]
     Active Substance: CYANOCOBALAMIN
     Indication: Product used for unknown indication
     Dosage: (INJECTION)
  5. CITRIC ACID [Concomitant]
     Active Substance: CITRIC ACID MONOHYDRATE
     Indication: Product used for unknown indication
     Dosage: (POWDER)
  6. LEVOCARNITINE [Concomitant]
     Active Substance: LEVOCARNITINE
     Indication: Product used for unknown indication
     Dosage: (POWDER)
  7. OMEPRAZOLE [Concomitant]
     Active Substance: DONEPEZIL HYDROCHLORIDE\OMEPRAZOLE\OMEPRAZOLE MAGNESIUM
     Indication: Product used for unknown indication
     Dosage: 10 MG CAPSULE DR

REACTIONS (3)
  - Hospitalisation [Unknown]
  - Hospitalisation [Not Recovered/Not Resolved]
  - Liver transplant [Recovering/Resolving]
